FAERS Safety Report 4933145-8 (Version None)
Quarter: 2006Q1

REPORT INFORMATION
  Report Type: 
  Country: None (occurrence: None)
  Receive Date: 20060301
  Receipt Date: 20060301
  Transmission Date: 20060701
  Serious: Yes (Hospitalization)
  Sender: FDA-Public Use
  Company Number: None

PATIENT
  Age: 63 Year
  Sex: Female
  Weight: 73 kg

DRUGS (6)
  1. CIPRO [Suspect]
     Dosage: 500MG PO BID
     Route: 048
  2. BENICAR [Concomitant]
  3. TOPROL-XL [Concomitant]
  4. CITRACAL [Concomitant]
  5. ROLAIDS [Concomitant]
  6. CIPROFLOXACIN [Concomitant]

REACTIONS (3)
  - FATIGUE [None]
  - MALAISE [None]
  - NEPHRITIS INTERSTITIAL [None]
